FAERS Safety Report 16674657 (Version 1)
Quarter: 2019Q3

REPORT INFORMATION
  Report Type: Spontaneous
  Country: US (occurrence: US)
  Receive Date: 20190806
  Receipt Date: 20190806
  Transmission Date: 20191004
  Serious: No
  Sender: FDA-Public Use
  Company Number: US-ASTRAZENECA-2019SE94574

PATIENT
  Age: 81 Year
  Sex: Female

DRUGS (11)
  1. AMITRIPTYLINE [Concomitant]
     Active Substance: AMITRIPTYLINE
     Dosage: UNKNOWN
     Route: 065
  2. CARDURA [Concomitant]
     Active Substance: DOXAZOSIN MESYLATE
     Route: 065
  3. HYDROXYZINE HYDROCHLORIDE. [Concomitant]
     Active Substance: HYDROXYZINE HYDROCHLORIDE
  4. METOPROLOL. [Suspect]
     Active Substance: METOPROLOL
     Route: 065
  5. LOSARTAN. [Concomitant]
     Active Substance: LOSARTAN
     Dosage: UNKNOWN
     Route: 065
  6. FASENRA [Suspect]
     Active Substance: BENRALIZUMAB
     Route: 058
  7. BREO ELLIPTA [Concomitant]
     Active Substance: FLUTICASONE FUROATE\VILANTEROL TRIFENATATE
     Dosage: UNKNOWN
     Route: 065
  8. ARICEPT [Concomitant]
     Active Substance: DONEPEZIL HYDROCHLORIDE
     Dosage: UNKNOWN
     Route: 065
  9. RABEPRAZOLE [Concomitant]
     Active Substance: RABEPRAZOLE
     Dosage: UNKNOWN
     Route: 065
  10. LASIX [Concomitant]
     Active Substance: FUROSEMIDE
     Dosage: UNKNOWN
     Route: 065
  11. LEVOTHYROXINE. [Concomitant]
     Active Substance: LEVOTHYROXINE
     Route: 065

REACTIONS (1)
  - Injection site pain [Unknown]
